FAERS Safety Report 25610626 (Version 1)
Quarter: 2025Q3

REPORT INFORMATION
  Report Type: Spontaneous
  Country: US (occurrence: US)
  Receive Date: 20250728
  Receipt Date: 20250728
  Transmission Date: 20251021
  Serious: Yes (Life-Threatening, Hospitalization, Other)
  Sender: CADILA
  Company Number: US-CPL-005542

PATIENT
  Age: 28 Year
  Sex: Male

DRUGS (2)
  1. BUPROPION [Suspect]
     Active Substance: BUPROPION
  2. OLANZAPINE [Suspect]
     Active Substance: OLANZAPINE

REACTIONS (7)
  - Cardiac failure [Unknown]
  - Toxicity to various agents [Unknown]
  - Overdose [Unknown]
  - Generalised tonic-clonic seizure [Recovered/Resolved]
  - Cardiogenic shock [Unknown]
  - Cardiac arrest [Unknown]
  - Bundle branch block right [Unknown]
